FAERS Safety Report 16093948 (Version 1)
Quarter: 2019Q2

REPORT INFORMATION
  Report Type: Spontaneous
  Country: US (occurrence: US)
  Receive Date: 20190319
  Receipt Date: 20190319
  Transmission Date: 20190711
  Serious: No
  Sender: FDA-Public Use
  Company Number: None

PATIENT
  Age: 22 Year
  Sex: Female
  Weight: 60.75 kg

DRUGS (3)
  1. CREST PRO-HEALTH (CETYLPYRIDINIUM CHLORIDE) [Suspect]
     Active Substance: CETYLPYRIDINIUM CHLORIDE
     Indication: BREATH ODOUR
     Dosage: ?          QUANTITY:4 TEASPOON(S);?
     Route: 048
     Dates: start: 20190315, end: 20190317
  2. LILETTA [Concomitant]
     Active Substance: LEVONORGESTREL
  3. SPEARMINT TEA [Concomitant]

REACTIONS (1)
  - Ageusia [None]

NARRATIVE: CASE EVENT DATE: 20190319
